FAERS Safety Report 16676978 (Version 2)
Quarter: 2021Q4

REPORT INFORMATION
  Report Type: Spontaneous
  Country: ES (occurrence: ES)
  Receive Date: 20190807
  Receipt Date: 20211028
  Transmission Date: 20220304
  Serious: Yes (Life-Threatening, Hospitalization, Other)
  Sender: FDA-Public Use
  Company Number: ES-AEMPS-523822

PATIENT
  Age: 94 Year
  Sex: Female

DRUGS (5)
  1. ASPIRIN [Interacting]
     Active Substance: ASPIRIN
     Indication: Peripheral arterial occlusive disease
     Dosage: 100 MILLIGRAM, ONCE A DAY (100 MG, QD)
     Route: 048
     Dates: start: 201906, end: 20190621
  2. CLOPIDOGREL [Interacting]
     Active Substance: CLOPIDOGREL BISULFATE
     Indication: Peripheral arterial occlusive disease
     Dosage: 75 MILLIGRAM, ONCE A DAY (75 MG, QD)
     Route: 048
     Dates: start: 201904, end: 20190621
  3. SERTRALINE [Interacting]
     Active Substance: SERTRALINE HYDROCHLORIDE
     Indication: Mixed anxiety and depressive disorder
     Dosage: 25 MILLIGRAM, ONCE A DAY (25 MG, QD)
     Route: 048
     Dates: start: 20190525
  4. LORAZEPAM [Concomitant]
     Active Substance: LORAZEPAM
     Indication: Mixed anxiety and depressive disorder
     Dosage: 1 MILLIGRAM, ONCE A DAY (1 MG, QD)
     Route: 048
     Dates: start: 20190523
  5. QUETIAPINE [Concomitant]
     Active Substance: QUETIAPINE
     Indication: Mixed anxiety and depressive disorder
     Dosage: 25 MILLIGRAM, ONCE A DAY (25 MG, QD)
     Route: 048
     Dates: start: 20190528

REACTIONS (1)
  - Upper gastrointestinal haemorrhage [Recovered/Resolved]

NARRATIVE: CASE EVENT DATE: 20190621
